FAERS Safety Report 15359869 (Version 2)
Quarter: 2018Q4

REPORT INFORMATION
  Report Type: Report from Study
  Country: DK (occurrence: DK)
  Receive Date: 20180907
  Receipt Date: 20181004
  Transmission Date: 20190204
  Serious: Yes (Other)
  Sender: FDA-Public Use
  Company Number: DK-AUROBINDO-AUR-APL-2018-044654

PATIENT

DRUGS (3)
  1. WARFARIN [Interacting]
     Active Substance: WARFARIN
     Indication: ANTICOAGULANT THERAPY
     Dosage: UNK
     Route: 016
  2. ASPIRIN                            /00002701/ [Interacting]
     Active Substance: ASPIRIN
     Indication: ANTIPLATELET THERAPY
     Dosage: UNK
     Route: 065
  3. CLOPIDOGREL [Suspect]
     Active Substance: CLOPIDOGREL BISULFATE
     Indication: ANTIPLATELET THERAPY
     Dosage: UNK
     Route: 065

REACTIONS (4)
  - Haematoma [Unknown]
  - Product administration error [Unknown]
  - Labelled drug-drug interaction medication error [Unknown]
  - Post procedural haematoma [Unknown]
